FAERS Safety Report 10404342 (Version 1)
Quarter: 2014Q1

REPORT INFORMATION
  Report Type: Spontaneous
  Country: US (occurrence: None)
  Receive Date: 20140214
  Receipt Date: 20140214
  Transmission Date: 20141002
  Serious: No
  Sender: FDA-Public Use
  Company Number: A-US2013-92408

PATIENT
  Age: 85 Year
  Sex: Female

DRUGS (2)
  1. OPSUMIT (MACITENTAN) [Suspect]
     Indication: CONNECTIVE TISSUE DISORDER
     Route: 048
  2. REVATIO (SILDENAFIL CITRATE) [Concomitant]

REACTIONS (3)
  - Malaise [None]
  - Swelling [None]
  - Feeling abnormal [None]
